FAERS Safety Report 9457554 (Version 1)
Quarter: 2013Q3

REPORT INFORMATION
  Report Type: Report from Study
  Country: GB (occurrence: GB)
  Receive Date: 20130814
  Receipt Date: 20130814
  Transmission Date: 20140515
  Serious: Yes (Hospitalization)
  Sender: FDA-Public Use
  Company Number: GB-ROCHE-1261264

PATIENT
  Sex: Female
  Weight: 90 kg

DRUGS (2)
  1. RITUXIMAB [Suspect]
     Indication: RHEUMATOID ARTHRITIS
     Dosage: LAST DOSE PRIOR TO SAE ON 29/APR/2012
     Route: 065
     Dates: start: 20110704
  2. METHOTREXATE [Concomitant]

REACTIONS (2)
  - Angina unstable [Unknown]
  - Oesophageal spasm [Unknown]
